FAERS Safety Report 5368491-X (Version None)
Quarter: 2007Q2

REPORT INFORMATION
  Report Type: 
  Country: None (occurrence: None)
  Receive Date: 20070620
  Receipt Date: 20070607
  Transmission Date: 20071010
  Serious: Yes (Hospitalization)
  Sender: FDA-Public Use
  Company Number: 2007JP002290

PATIENT
  Age: 83 Year
  Sex: Female

DRUGS (10)
  1. VESICARE [Suspect]
     Indication: HYPERTONIC BLADDER
     Dosage: 15 MG, UID/QD, ORAL
     Route: 048
     Dates: start: 20070515, end: 20070515
  2. CRAVIT(LEVOFLOXACIN) TABLET [Suspect]
     Indication: CYSTITIS
     Dosage: 1400 MG, /D, ORAL
     Route: 048
     Dates: start: 20070514, end: 20070514
  3. FLAVONATE (FLAVOXATE HYDROCHLORIDE) TABLET [Concomitant]
  4. MUCOSTA (REBAMIPIDE) [Concomitant]
  5. SYMMETREL [Concomitant]
  6. ASPARA K (ASPARTATE POTASSIUM) [Concomitant]
  7. CEPHADOL (DIFENIDOL HYDROCHLORIDE) [Concomitant]
  8. NIVADIL TABLET [Concomitant]
  9. BAYASPIRIN TABLET [Concomitant]
  10. ISOSORBIDE DINITRATE [Concomitant]

REACTIONS (8)
  - ABASIA [None]
  - DEPRESSED LEVEL OF CONSCIOUSNESS [None]
  - DRUG INTERACTION [None]
  - GAIT DISTURBANCE [None]
  - MUSCULAR WEAKNESS [None]
  - NERVOUS SYSTEM DISORDER [None]
  - OVERDOSE [None]
  - SOMNOLENCE [None]
